FAERS Safety Report 5766964-9 (Version None)
Quarter: 2008Q2

REPORT INFORMATION
  Report Type: 
  Country: None (occurrence: None)
  Receive Date: 20080612
  Receipt Date: 20080604
  Transmission Date: 20081010
  Serious: Yes (Hospitalization)
  Sender: FDA-Public Use
  Company Number: US-WATSON-2008-03057

PATIENT
  Sex: Female

DRUGS (1)
  1. FENTANYL-50 (WATSON LABORATORIES) [Suspect]
     Indication: PAIN
     Dosage: 1 PATCH, SINGLE
     Route: 062
     Dates: start: 20080509, end: 20080510

REACTIONS (3)
  - CHEST PAIN [None]
  - DRUG INEFFECTIVE [None]
  - PAIN [None]
